FAERS Safety Report 8602773-0 (Version None)
Quarter: 2012Q3

REPORT INFORMATION
  Report Type: 
  Country: None (occurrence: None)
  Receive Date: 20120817
  Receipt Date: 20120808
  Transmission Date: 20120928
  Serious: Yes (Other)
  Sender: FDA-Public Use
  Company Number: CA-JNJFOC-20120803719

PATIENT
  Sex: Male
  Weight: 82 kg

DRUGS (3)
  1. REMICADE [Suspect]
     Route: 042
     Dates: start: 20060801
  2. IMURAN [Concomitant]
     Route: 048
  3. REMICADE [Suspect]
     Indication: COLITIS ULCERATIVE
     Route: 042
     Dates: start: 20120515

REACTIONS (1)
  - NEPHROLITHIASIS [None]
